FAERS Safety Report 5545678-4 (Version None)
Quarter: 2007Q4

REPORT INFORMATION
  Report Type: 
  Country: None (occurrence: None)
  Receive Date: 20071207
  Receipt Date: 20071126
  Transmission Date: 20080405
  Serious: Yes (Other)
  Sender: FDA-Public Use
  Company Number: GXKR2007IT10152

PATIENT
  Age: 39 Year
  Sex: Female

DRUGS (4)
  1. PREDNISONE [Suspect]
     Indication: PREMEDICATION
     Dosage: 50 MG, 1 AND 7H BEFORE SURGERY, ORAL
     Route: 048
  2. METHYLPREDNISOLONE [Suspect]
     Indication: ANGIOEDEMA
     Dosage: 80 MG, INTRAVENOUS
     Route: 042
  3. CHLORPHENIRAMINE TAB [Concomitant]
  4. MEPIVACAINE HCL [Concomitant]

REACTIONS (4)
  - ANGIOEDEMA [None]
  - CONDITION AGGRAVATED [None]
  - LARYNGEAL OEDEMA [None]
  - SKIN TEST POSITIVE [None]
